FAERS Safety Report 10379354 (Version 5)
Quarter: 2018Q1

REPORT INFORMATION
  Report Type: Report from Study
  Country: DE (occurrence: DE)
  Receive Date: 20140812
  Receipt Date: 20180228
  Transmission Date: 20180508
  Serious: Yes (Hospitalization, Other)
  Sender: FDA-Public Use
  Company Number: DE-PFIZER INC-2014059241

PATIENT
  Age: 54 Year
  Sex: Male
  Weight: 74 kg

DRUGS (10)
  1. INSUMAN BASAL [Concomitant]
     Active Substance: INSULIN HUMAN
     Indication: DIABETES MELLITUS
     Dosage: 26 IU, AT NIGHT
     Route: 058
     Dates: start: 20140204, end: 20140307
  2. METAMIZOLE [Concomitant]
     Active Substance: METAMIZOLE
     Indication: PAIN
     Dosage: 500 MG, 4X/DAY
     Route: 048
     Dates: start: 20140204, end: 20140307
  3. TOFACITINIB CITRATE [Suspect]
     Active Substance: TOFACITINIB CITRATE
     Indication: PSORIASIS
     Dosage: 5 MG, 2X/DAY (1-0-1)
     Route: 048
     Dates: start: 20121218, end: 20140225
  4. APIDRA [Concomitant]
     Active Substance: INSULIN GLULISINE
     Indication: DIABETES MELLITUS
     Dosage: 30-16-22 IU/DAILY
     Route: 058
     Dates: start: 20140204, end: 20140307
  5. PANTOPRAZOL [Concomitant]
     Active Substance: PANTOPRAZOLE SODIUM
     Indication: PROPHYLAXIS
     Dosage: 40 MG, 1X/DAY
     Route: 048
     Dates: start: 20140204
  6. XELEVIA [Concomitant]
     Active Substance: SITAGLIPTIN PHOSPHATE
     Indication: DIABETES MELLITUS
     Dosage: 100 MG, DAILY
     Route: 048
     Dates: start: 20140204, end: 20140320
  7. CO-DIOVAN [Concomitant]
     Active Substance: HYDROCHLOROTHIAZIDE\VALSARTAN
     Indication: HYPERTENSION
     Dosage: 160 MG /12.5 MG, 1X/DAY
     Route: 048
     Dates: start: 201201, end: 20140320
  8. ALLOPURINOL. [Concomitant]
     Active Substance: ALLOPURINOL
     Indication: HYPERURICAEMIA
     Dosage: 150 MG, 1X/DAY
     Route: 048
     Dates: start: 20140204, end: 20140307
  9. VALORON N [Concomitant]
     Active Substance: NALOXONE HYDROCHLORIDE\TILIDINE HYDROCHLORIDE
     Indication: PAIN
     Dosage: 100 MG / 8 MG, 2X/DAY
     Route: 048
     Dates: start: 201204, end: 20140307
  10. AMITRIPTYLINE [Concomitant]
     Active Substance: AMITRIPTYLINE
     Indication: DEPRESSION
     Dosage: 50 MG, ONCE DAILY AT NIGHT
     Route: 048
     Dates: start: 20140204, end: 20140320

REACTIONS (4)
  - Cholelithiasis [Recovered/Resolved]
  - Gallbladder empyema [Recovered/Resolved]
  - Malignant neoplasm of ampulla of Vater [Not Recovered/Not Resolved]
  - Cholecystitis [Recovered/Resolved]

NARRATIVE: CASE EVENT DATE: 20140225
